FAERS Safety Report 11699985 (Version 1)
Quarter: 2015Q4

REPORT INFORMATION
  Report Type: Spontaneous
  Country: US (occurrence: None)
  Receive Date: 20151104
  Receipt Date: 20151104
  Transmission Date: 20160304
  Serious: Yes (Hospitalization)
  Sender: FDA-Public Use
  Company Number: None

PATIENT
  Age: 67 Year
  Sex: Male
  Weight: 73.9 kg

DRUGS (1)
  1. HYDROCHLOROTHIAZIDE/TRIAMTERENE [Suspect]
     Active Substance: HYDROCHLOROTHIAZIDE\TRIAMTERENE
     Indication: HYPERTENSION
     Dosage: 50/75 MG, EVERY DAY
     Route: 048
     Dates: start: 20150311, end: 20150313

REACTIONS (4)
  - Hyperkalaemia [None]
  - Coronary artery stenosis [None]
  - Acute kidney injury [None]
  - Chest pain [None]

NARRATIVE: CASE EVENT DATE: 20150313
